FAERS Safety Report 5728803-1 (Version None)
Quarter: 2008Q2

REPORT INFORMATION
  Report Type: 
  Country: None (occurrence: None)
  Receive Date: 20080506
  Receipt Date: 20080425
  Transmission Date: 20081010
  Serious: Yes (Other)
  Sender: FDA-Public Use
  Company Number: AR-ROCHE-561134

PATIENT
  Age: 77 Year
  Sex: Female

DRUGS (3)
  1. IBANDRONIC ACID [Suspect]
     Indication: OSTEOPOROSIS
     Route: 048
     Dates: start: 20070420
  2. LEVOTHYROXINE SODIUM [Concomitant]
     Indication: HYPOTHYROIDISM
     Dosage: DRUG REPORTED AS: LEVOTIROXINE.
  3. 1 CONCOMITANT DRUG [Concomitant]
     Indication: STEROID THERAPY
     Dosage: DRUG REPORTED AS: DELTIZONE B.

REACTIONS (2)
  - ANAEMIA [None]
  - HAEMATOCHEZIA [None]
